FAERS Safety Report 8307999-1 (Version None)
Quarter: 2012Q2

REPORT INFORMATION
  Report Type: 
  Country: None (occurrence: None)
  Receive Date: 20120424
  Receipt Date: 20120417
  Transmission Date: 20120825
  Serious: Yes (Hospitalization)
  Sender: FDA-Public Use
  Company Number: JP-VIIV HEALTHCARE LIMITED-B0796778A

PATIENT
  Sex: Male

DRUGS (8)
  1. ZERIT [Concomitant]
  2. VIREAD [Concomitant]
  3. KALETRA [Concomitant]
  4. RETROVIR [Concomitant]
     Indication: HIV INFECTION
  5. ZIAGEN [Concomitant]
     Indication: HIV INFECTION
     Dosage: 600MG PER DAY
  6. EPIVIR [Concomitant]
  7. EFAVIRENZ [Concomitant]
     Indication: HIV INFECTION
     Dosage: 600MG PER DAY
     Route: 048
     Dates: start: 20020610
  8. EPZICOM [Suspect]
     Indication: HIV INFECTION
     Dosage: 1IUAX PER DAY
     Route: 048
     Dates: start: 20060308, end: 20070329

REACTIONS (4)
  - CHEST PAIN [None]
  - CARDIAC FAILURE [None]
  - HEART RATE INCREASED [None]
  - DYSPNOEA EXERTIONAL [None]
